APPROVED DRUG PRODUCT: TACROLIMUS
Active Ingredient: TACROLIMUS
Strength: 0.1%
Dosage Form/Route: OINTMENT;TOPICAL
Application: A212387 | Product #001 | TE Code: BX
Applicant: ENCUBE ETHICALS PRIVATE LTD
Approved: Oct 10, 2023 | RLD: No | RS: No | Type: RX